FAERS Safety Report 8261812-X (Version None)
Quarter: 2012Q2

REPORT INFORMATION
  Report Type: 
  Country: None (occurrence: None)
  Receive Date: 20120405
  Receipt Date: 20120326
  Transmission Date: 20120825
  Serious: Yes (Hospitalization)
  Sender: FDA-Public Use
  Company Number: JP-BRISTOL-MYERS SQUIBB COMPANY-16487506

PATIENT
  Age: 55 Year
  Sex: Male

DRUGS (6)
  1. ACTOS [Concomitant]
     Route: 048
  2. NICARDIPINE HCL [Concomitant]
     Route: 048
  3. METFORMIN HCL [Suspect]
     Indication: DIABETES MELLITUS
     Route: 048
  4. TENORMIN [Concomitant]
     Route: 048
  5. DEPAS [Concomitant]
     Route: 048
  6. AMARYL [Concomitant]
     Route: 048

REACTIONS (3)
  - ALANINE AMINOTRANSFERASE INCREASED [None]
  - ASPARTATE AMINOTRANSFERASE INCREASED [None]
  - BLOOD BILIRUBIN INCREASED [None]
